FAERS Safety Report 10057783 (Version 1)
Quarter: 2014Q2

REPORT INFORMATION
  Report Type: Report from Study
  Country: US (occurrence: US)
  Receive Date: 20140404
  Receipt Date: 20140404
  Transmission Date: 20141212
  Serious: Yes (Other)
  Sender: FDA-Public Use
  Company Number: US-ROCHE-1371279

PATIENT
  Sex: 0

DRUGS (6)
  1. BEVACIZUMAB [Suspect]
     Indication: COLORECTAL CANCER METASTATIC
     Route: 065
  2. BEVACIZUMAB [Suspect]
     Indication: METASTASES TO LIVER
  3. FLOXURIDINE [Concomitant]
     Indication: METASTASES TO LIVER
  4. FLOXURIDINE [Concomitant]
     Indication: COLORECTAL CANCER METASTATIC
  5. DEXAMETHASONE [Concomitant]
     Indication: METASTASES TO LIVER
  6. DEXAMETHASONE [Concomitant]
     Indication: COLORECTAL CANCER METASTATIC

REACTIONS (10)
  - Diarrhoea [Unknown]
  - Blood alkaline phosphatase abnormal [Unknown]
  - Aspartate aminotransferase [Unknown]
  - Abdominal pain [Unknown]
  - Neurotoxicity [Unknown]
  - Toxicity to various agents [Unknown]
  - White blood cell disorder [Unknown]
  - Nausea [Unknown]
  - Vomiting [Unknown]
  - Mucosal inflammation [Unknown]
